FAERS Safety Report 6190288-1 (Version None)
Quarter: 2009Q2

REPORT INFORMATION
  Report Type: 
  Country: None (occurrence: None)
  Receive Date: 20090514
  Receipt Date: 20090512
  Transmission Date: 20091009
  Serious: Yes (Hospitalization)
  Sender: FDA-Public Use
  Company Number: A0745536A

PATIENT
  Sex: Female

DRUGS (5)
  1. LAPATINIB [Suspect]
     Dosage: 1500MG PER DAY
     Route: 048
     Dates: start: 20080821
  2. PACLITAXEL [Suspect]
     Dosage: 80MGM2 CYCLIC
     Route: 042
     Dates: start: 20080821
  3. ETIMICIN [Concomitant]
     Indication: INFECTION PROPHYLAXIS
     Dosage: .2G PER DAY
     Route: 042
     Dates: start: 20080901, end: 20080906
  4. VITAMINS [Concomitant]
     Dosage: 2G PER DAY
     Route: 042
     Dates: start: 20080901, end: 20080906
  5. CEFOPERAZONE + SULBACTAM [Concomitant]
     Indication: INFECTION PROPHYLAXIS
     Dosage: 4G PER DAY
     Route: 042
     Dates: start: 20080902, end: 20080906

REACTIONS (2)
  - LEUKOPENIA [None]
  - NEUTROPENIA [None]
